FAERS Safety Report 18535748 (Version 2)
Quarter: 2020Q4

REPORT INFORMATION
  Report Type: Spontaneous
  Country: US (occurrence: US)
  Receive Date: 20201123
  Receipt Date: 20201130
  Transmission Date: 20210114
  Serious: Yes (Other)
  Sender: FDA-Public Use
  Company Number: US-PFIZER INC-2020188506

PATIENT
  Age: 69 Year
  Sex: Female
  Weight: 49.44 kg

DRUGS (5)
  1. RAPAMUNE [Suspect]
     Active Substance: SIROLIMUS
     Dosage: UNK UNK, DAILY (0.5 MG; TAKE TWO AND ONE-HALF DAILY BY MOUTH)
     Route: 048
  2. RAPAMUNE [Suspect]
     Active Substance: SIROLIMUS
     Indication: LUNG TRANSPLANT REJECTION
     Dosage: 3 MG, 1X/DAY (1MG -3 PO QD (ONCE DAILY))
  3. RAPAMUNE [Suspect]
     Active Substance: SIROLIMUS
     Dosage: 3 MG, DAILY (THREE 1MG TABLETS DAILY)
  4. RAPAMUNE [Suspect]
     Active Substance: SIROLIMUS
     Dosage: 4 MG, DAILY (FOUR 1MG TABLETS)
  5. RAPAMUNE [Suspect]
     Active Substance: SIROLIMUS
     Dosage: 1 MG, DAILY

REACTIONS (6)
  - Dyspnoea [Recovering/Resolving]
  - Off label use [Unknown]
  - Body height decreased [Unknown]
  - Pulmonary oedema [Recovering/Resolving]
  - Seizure [Unknown]
  - Spinal deformity [Unknown]

NARRATIVE: CASE EVENT DATE: 2020
